FAERS Safety Report 8426279-7 (Version None)
Quarter: 2012Q2

REPORT INFORMATION
  Report Type: 
  Country: None (occurrence: None)
  Receive Date: 20120323
  Receipt Date: 20110425
  Transmission Date: 20120825
  Serious: Yes (Other)
  Sender: FDA-Public Use
  Company Number: 163-21880-11043251

PATIENT
  Age: 57 Year
  Sex: Male

DRUGS (7)
  1. LENALIDOMIDE [Suspect]
     Indication: MULTIPLE MYELOMA
     Dosage: 10 MG, DAILY, PO
     Route: 048
     Dates: start: 20110411, end: 20110415
  2. ALPHA LIPOIC ACID (THIOCTIC ACID) [Concomitant]
  3. CO-Q 10 (UBIDECARENONE) [Concomitant]
  4. VITAMIN B6 [Concomitant]
  5. SELENIUM (SELENIUM) [Concomitant]
  6. ASPIRIN [Concomitant]
  7. GLUCOSAMINE (GLUCOSAMINE) [Concomitant]

REACTIONS (4)
  - EYE SWELLING [None]
  - SWELLING FACE [None]
  - HYPERSENSITIVITY [None]
  - URTICARIA [None]
